FAERS Safety Report 10674180 (Version 4)
Quarter: 2015Q1

REPORT INFORMATION
  Report Type: Spontaneous
  Country: IT (occurrence: IT)
  Receive Date: 20141224
  Receipt Date: 20150317
  Transmission Date: 20150720
  Serious: Yes (Other)
  Sender: FDA-Public Use
  Company Number: IT-PFIZER INC-2014353386

PATIENT
  Age: 61 Year
  Sex: Female

DRUGS (13)
  1. LYRICA [Suspect]
     Active Substance: PREGABALIN
     Indication: DEPRESSION
  2. TRITTICO [Suspect]
     Active Substance: TRAZODONE HYDROCHLORIDE
     Indication: INTENTIONAL SELF-INJURY
     Dosage: 50 MG, DAILY
     Route: 048
  3. PRAZENE [Concomitant]
     Active Substance: PRAZEPAM
     Indication: DEPRESSION
     Dosage: 20 MG, DAILY
     Route: 048
  4. SOTALOL. [Concomitant]
     Active Substance: SOTALOL
  5. LYRICA [Suspect]
     Active Substance: PREGABALIN
     Indication: INTENTIONAL SELF-INJURY
     Dosage: 300 MG (150 MG 2 TABLETS), DAILY
     Route: 048
  6. TRITTICO [Suspect]
     Active Substance: TRAZODONE HYDROCHLORIDE
     Indication: DEPRESSION
  7. VALSARTAN. [Concomitant]
     Active Substance: VALSARTAN
  8. INSULIN [Concomitant]
     Active Substance: INSULIN NOS
  9. DIAZEPAM. [Suspect]
     Active Substance: DIAZEPAM
     Indication: INTENTIONAL SELF-INJURY
     Dosage: UNK
     Route: 048
  10. PANTOPRAZOLE [Concomitant]
     Active Substance: PANTOPRAZOLE SODIUM
  11. SERTRALINE HCL [Suspect]
     Active Substance: SERTRALINE HYDROCHLORIDE
     Indication: INTENTIONAL SELF-INJURY
     Dosage: 100 MG, DAILY
     Route: 048
  12. SERTRALINE HCL [Suspect]
     Active Substance: SERTRALINE HYDROCHLORIDE
     Indication: DEPRESSION
  13. ADENURIC [Concomitant]
     Active Substance: FEBUXOSTAT
     Indication: DEPRESSION
     Dosage: 1 DF, ALTERNATE DAY

REACTIONS (5)
  - Drug abuse [Recovered/Resolved]
  - Asthenia [Recovered/Resolved]
  - Malaise [Recovered/Resolved]
  - Dizziness [Recovered/Resolved]
  - Fall [Recovered/Resolved]

NARRATIVE: CASE EVENT DATE: 20141204
